FAERS Safety Report 8524746-9 (Version None)
Quarter: 2012Q3

REPORT INFORMATION
  Report Type: 
  Country: None (occurrence: None)
  Receive Date: 20120711
  Receipt Date: 20120629
  Transmission Date: 20120928
  Serious: Yes (Other)
  Sender: FDA-Public Use
  Company Number: 2012MA008261

PATIENT
  Age: 69 Year
  Sex: Male

DRUGS (11)
  1. GABAPENTIN [Suspect]
     Indication: NEURALGIA
     Dosage: 100 MG, TID, PO
     Route: 048
     Dates: start: 20120611, end: 20120618
  2. RAMIPRIL [Concomitant]
  3. ALLOPURINOL [Concomitant]
  4. TAMSULOSIN HCL [Concomitant]
  5. BECLOMETHASONE DIPROPIONATE [Concomitant]
  6. BENDROFLUMETHIAZIDE [Concomitant]
  7. DUTASTERIDE [Concomitant]
  8. ALBUTEROL SULATE [Concomitant]
  9. GAVISCON [Concomitant]
  10. ATORVASTATIN [Concomitant]
  11. PANTOPRAZOLE [Concomitant]

REACTIONS (1)
  - MENTAL DISORDER [None]
